FAERS Safety Report 7784637-8 (Version None)
Quarter: 2011Q3

REPORT INFORMATION
  Report Type: 
  Country: None (occurrence: None)
  Receive Date: 20110926
  Receipt Date: 20110913
  Transmission Date: 20111222
  Serious: Yes (Death)
  Sender: FDA-Public Use
  Company Number: B0749695A

PATIENT

DRUGS (4)
  1. ARSENIC TRIOXIDE [Suspect]
     Dosage: INTRAVENOUS
     Route: 042
  2. MELPHALAN HYDROCHLORIDE [Suspect]
     Indication: MULTIPLE MYELOMA
     Dosage: INTRAVENOUS
     Route: 042
  3. ASCORBIC ACID [Suspect]
     Dosage: INTRAVENOUS
     Route: 042
  4. GRANULOCYTE COL.STIM.FACT [Concomitant]

REACTIONS (1)
  - TOXICITY TO VARIOUS AGENTS [None]
